FAERS Safety Report 16715273 (Version 1)
Quarter: 2019Q4

REPORT INFORMATION
  Report Type: Spontaneous
  Country: US (occurrence: US)
  Receive Date: 20190816
  Receipt Date: 20190816
  Transmission Date: 20200122
  Serious: Yes (Hospitalization)
  Sender: FDA-Public Use
  Company Number: None

PATIENT
  Age: 47 Year
  Sex: Male

DRUGS (6)
  1. TACROLIMUS. [Suspect]
     Active Substance: TACROLIMUS
     Indication: RENAL TRANSPLANT
     Route: 048
     Dates: start: 20181107
  2. ZOTRESS 1MG BID [Concomitant]
     Dates: start: 20190426
  3. ATORVASTATIN [Concomitant]
     Active Substance: ATORVASTATIN
  4. FEROSUL [Concomitant]
  5. MYCOPHENOLIC [Suspect]
     Active Substance: MYCOPHENOLIC ACID
     Indication: RENAL TRANSPLANT
     Route: 048
     Dates: start: 20181126
  6. FLUDROCORT [Concomitant]

REACTIONS (2)
  - Hospitalisation [None]
  - Unevaluable event [None]

NARRATIVE: CASE EVENT DATE: 20190810
